FAERS Safety Report 6425632-0 (Version None)
Quarter: 2009Q4

REPORT INFORMATION
  Report Type: 
  Country: None (occurrence: None)
  Receive Date: 20091103
  Receipt Date: 20091028
  Transmission Date: 20100525
  Serious: Yes (Death, Hospitalization)
  Sender: FDA-Public Use
  Company Number: IN-GENENTECH-293259

PATIENT
  Age: 60 Year
  Sex: Male

DRUGS (1)
  1. METALYSE [Suspect]
     Indication: ACUTE MYOCARDIAL INFARCTION
     Dosage: 0.5 MG/KG, UNK
     Route: 042
     Dates: start: 20091023, end: 20091023

REACTIONS (2)
  - DEATH [None]
  - DRUG INEFFECTIVE [None]
